FAERS Safety Report 6109331-0 (Version None)
Quarter: 2009Q1

REPORT INFORMATION
  Report Type: 
  Country: None (occurrence: None)
  Receive Date: 20090306
  Receipt Date: 20090224
  Transmission Date: 20090719
  Serious: No
  Sender: FDA-Public Use
  Company Number: 2008-187388-NL

PATIENT
  Sex: Female

DRUGS (3)
  1. GANIRELIX ACETATE INJECTION [Suspect]
     Indication: INFERTILITY
     Dosage: SUBCUTANEOUS
     Route: 058
     Dates: start: 20081021, end: 20081028
  2. FOLLITROPIN BETA [Suspect]
     Indication: INFERTILITY
     Dosage: SUBCUTANEOUS
     Route: 058
     Dates: start: 20081016, end: 20081016
  3. MENOTROPINS [Concomitant]

REACTIONS (1)
  - CARDIOVASCULAR INSUFFICIENCY [None]
